FAERS Safety Report 5033814-8 (Version None)
Quarter: 2006Q2

REPORT INFORMATION
  Report Type: 
  Country: None (occurrence: None)
  Receive Date: 20060620
  Receipt Date: 20060605
  Transmission Date: 20061013
  Serious: No
  Sender: FDA-Public Use
  Company Number: 2006RR-02568

PATIENT
  Age: 37 Year
  Sex: Male

DRUGS (1)
  1. FLECAINIDE ACETATE [Suspect]
     Dosage: INTRAVENOUS
     Route: 042

REACTIONS (1)
  - VENTRICULAR TACHYCARDIA [None]
